FAERS Safety Report 4416352-2 (Version None)
Quarter: 2004Q3

REPORT INFORMATION
  Report Type: 
  Country: None (occurrence: None)
  Receive Date: 20040805
  Receipt Date: 20040528
  Transmission Date: 20050211
  Serious: Yes (Other)
  Sender: FDA-Public Use
  Company Number: PHEH2004US05981

PATIENT
  Age: 81 Year
  Sex: Male

DRUGS (4)
  1. ZOMETA [Suspect]
     Indication: MULTIPLE MYELOMA
     Dosage: 4 MG, QMO
     Route: 042
     Dates: start: 20021209
  2. ALKERAN [Concomitant]
  3. PREDNISONE [Concomitant]
  4. TAMSULOSIN HYDROCHLORIDE [Concomitant]

REACTIONS (4)
  - ARTHRITIS [None]
  - PAIN IN EXTREMITY [None]
  - PROSTATE CANCER [None]
  - PROSTATIC SPECIFIC ANTIGEN INCREASED [None]
